FAERS Safety Report 7899887-X (Version None)
Quarter: 2011Q4

REPORT INFORMATION
  Report Type: 
  Country: None (occurrence: None)
  Receive Date: 20111107
  Receipt Date: 20110930
  Transmission Date: 20120403
  Serious: Yes (Death, Life-Threatening, Hospitalization, Other)
  Sender: FDA-Public Use
  Company Number: US-AMGEN-USASP2011005520

PATIENT
  Age: 49 Year
  Sex: Male
  Weight: 80 kg

DRUGS (5)
  1. FOLIC ACID [Concomitant]
  2. TOPROL-XL [Concomitant]
     Dosage: UNK
  3. ENBREL [Suspect]
     Indication: PSORIASIS
     Dosage: UNK
     Dates: start: 20071022
  4. NEXIUM [Concomitant]
  5. ENBREL [Suspect]
     Dosage: 50 MG, 2X/WEEK 72-96 HOURS APART
     Route: 058
     Dates: start: 20070801, end: 20080114

REACTIONS (1)
  - ENDOCARDITIS [None]
